FAERS Safety Report 12391191 (Version 1)
Quarter: 2016Q2

REPORT INFORMATION
  Report Type: Spontaneous
  Country: US (occurrence: US)
  Receive Date: 20160520
  Receipt Date: 20160520
  Transmission Date: 20160815
  Serious: Yes (Other)
  Sender: FDA-Public Use
  Company Number: US-MDT-ADR-2016-00037

PATIENT
  Age: 32 Year
  Sex: Male

DRUGS (1)
  1. BACLOFEN. [Suspect]
     Active Substance: BACLOFEN
     Dosage: 1253MCG/DAY
     Route: 037

REACTIONS (3)
  - Incision site infection [Recovered/Resolved]
  - Medical device site infection [Recovered/Resolved]
  - Pocket erosion [Recovered/Resolved]
